FAERS Safety Report 5178226-1 (Version None)
Quarter: 2006Q4

REPORT INFORMATION
  Report Type: 
  Country: None (occurrence: None)
  Receive Date: 20061208
  Receipt Date: 20061102
  Transmission Date: 20070319
  Serious: Yes (Death)
  Sender: FDA-Public Use
  Company Number: 2006SP005520

PATIENT

DRUGS (2)
  1. TEMOZOLOMIDE (S-P) (TEMOZOLOMIDE) [Suspect]
     Indication: GLIOBLASTOMA MULTIFORME
  2. RADIOTHERAPY (CON.) [Concomitant]

REACTIONS (1)
  - GASTROINTESTINAL TOXICITY [None]
